FAERS Safety Report 25349909 (Version 2)
Quarter: 2025Q3

REPORT INFORMATION
  Report Type: Spontaneous
  Country: US (occurrence: US)
  Receive Date: 20250523
  Receipt Date: 20250813
  Transmission Date: 20251020
  Serious: Yes (Other)
  Sender: MDD OPERATIONS
  Company Number: US-MDD US Operations-MDD202505-001654

PATIENT
  Age: 54 Year
  Sex: Male

DRUGS (2)
  1. APOKYN [Suspect]
     Active Substance: APOMORPHINE HYDROCHLORIDE
     Indication: Parkinson^s disease
  2. APOKYN [Suspect]
     Active Substance: APOMORPHINE HYDROCHLORIDE
     Dosage: 1-3 TIMES A DAY
     Dates: start: 20241206

REACTIONS (3)
  - Skin cancer [Unknown]
  - Parkinson^s disease [Unknown]
  - Contusion [Not Recovered/Not Resolved]
